FAERS Safety Report 20722953 (Version 1)
Quarter: 2022Q2

REPORT INFORMATION
  Report Type: Spontaneous
  Country: None (occurrence: US)
  Receive Date: 20220419
  Receipt Date: 20220419
  Transmission Date: 20220720
  Serious: No
  Sender: FDA-Public Use
  Company Number: US-Appco Pharma LLC-2127893

PATIENT
  Sex: Female

DRUGS (1)
  1. MODAFINIL [Suspect]
     Active Substance: MODAFINIL
     Indication: Sleep disorder
     Route: 048
     Dates: start: 20220407

REACTIONS (2)
  - Illness [Unknown]
  - Somnolence [Unknown]

NARRATIVE: CASE EVENT DATE: 20220407
